FAERS Safety Report 16936438 (Version 1)
Quarter: 2019Q4

REPORT INFORMATION
  Report Type: Spontaneous
  Country: US (occurrence: US)
  Receive Date: 20191018
  Receipt Date: 20191018
  Transmission Date: 20200122
  Serious: Yes (Other)
  Sender: FDA-Public Use
  Company Number: US-JNJFOC-20191014426

PATIENT
  Sex: Male
  Weight: 72.64 kg

DRUGS (1)
  1. RISPERDAL [Suspect]
     Active Substance: RISPERIDONE
     Indication: ATTENTION DEFICIT/HYPERACTIVITY DISORDER
     Route: 065

REACTIONS (11)
  - Off label use [Unknown]
  - Mental disorder [Unknown]
  - Somnolence [Unknown]
  - Suicide attempt [Unknown]
  - Gynaecomastia [Unknown]
  - Weight increased [Unknown]
  - Dysgeusia [Unknown]
  - Product use in unapproved indication [Unknown]
  - Vomiting [Unknown]
  - Abnormal behaviour [Unknown]
  - Attention deficit/hyperactivity disorder [Unknown]
